FAERS Safety Report 14411173 (Version 1)
Quarter: 2018Q1

REPORT INFORMATION
  Report Type: Spontaneous
  Country: US (occurrence: US)
  Receive Date: 20180119
  Receipt Date: 20180119
  Transmission Date: 20180509
  Serious: No
  Sender: FDA-Public Use
  Company Number: US-BAYER-2018-012499

PATIENT
  Age: 85 Year
  Sex: Female
  Weight: 77 kg

DRUGS (1)
  1. ALEVE PM [Suspect]
     Active Substance: DIPHENHYDRAMINE HYDROCHLORIDE\NAPROXEN SODIUM
     Indication: SEDATIVE THERAPY
     Dosage: 2 DF, UNK
     Route: 048
     Dates: start: 201801, end: 201801

REACTIONS (3)
  - Product closure removal difficult [None]
  - Product package associated injury [Recovering/Resolving]
  - Product use in unapproved indication [None]

NARRATIVE: CASE EVENT DATE: 20180117
